FAERS Safety Report 9631811 (Version 1)
Quarter: 2013Q4

REPORT INFORMATION
  Report Type: Spontaneous
  Country: GB (occurrence: None)
  Receive Date: 20131015
  Receipt Date: 20131015
  Transmission Date: 20140711
  Serious: Yes (Other)
  Sender: FDA-Public Use
  Company Number: FK201304505

PATIENT
  Age: 83 Year
  Sex: Male

DRUGS (2)
  1. CLINDAMYCIN (MANUFACTURER UNKNOWN) (CLINDAMYCIN) (CLINDAMYCIN) [Suspect]
     Indication: POST PROCEDURAL INFECTION
  2. RIFAMPICIN [Suspect]
     Indication: POST PROCEDURAL INFECTION

REACTIONS (1)
  - Acute generalised exanthematous pustulosis [None]
